FAERS Safety Report 5920476-8 (Version None)
Quarter: 2008Q4

REPORT INFORMATION
  Report Type: 
  Country: None (occurrence: None)
  Receive Date: 20081016
  Receipt Date: 20081007
  Transmission Date: 20090506
  Serious: Yes (Other)
  Sender: FDA-Public Use
  Company Number: GB-TEVA-169793ISR

PATIENT
  Age: 53 Year
  Sex: Male

DRUGS (4)
  1. MIRTAZAPINE [Suspect]
     Route: 048
     Dates: start: 20070201, end: 20070529
  2. MIRTAZAPINE [Suspect]
     Route: 048
     Dates: start: 20070906, end: 20070914
  3. MIRTAZAPINE [Suspect]
     Dates: start: 20070914
  4. MIRTAZAPINE [Suspect]
     Dates: start: 20070529, end: 20070608

REACTIONS (8)
  - ABNORMAL DREAMS [None]
  - AGGRESSION [None]
  - ALCOHOL INTERACTION [None]
  - DEPRESSION [None]
  - HOMICIDE [None]
  - JOINT SWELLING [None]
  - NIGHTMARE [None]
  - OEDEMA PERIPHERAL [None]
